FAERS Safety Report 4307804-4 (Version None)
Quarter: 2004Q1

REPORT INFORMATION
  Report Type: 
  Country: None (occurrence: None)
  Receive Date: 20040223
  Receipt Date: 20040211
  Transmission Date: 20041129
  Serious: Yes (Hospitalization, Other)
  Sender: FDA-Public Use
  Company Number: 200410086BCA

PATIENT
  Age: 65 Year
  Sex: Female
  Weight: 32.5 kg

DRUGS (1)
  1. GAMIMUNE N 10% [Suspect]
     Indication: MULTIPLE MYELOMA
     Dosage: 10 G, Q3WK, INTRAVENOUS
     Route: 042
     Dates: start: 20030522

REACTIONS (5)
  - FEELING ABNORMAL [None]
  - HYPERSENSITIVITY [None]
  - PRURITUS [None]
  - RASH MACULAR [None]
  - URTICARIA [None]
